FAERS Safety Report 8835335 (Version 1)
Quarter: 2012Q4

REPORT INFORMATION
  Report Type: 
  Country: US (occurrence: US)
  Receive Date: 20121011
  Receipt Date: 20121011
  Transmission Date: 20130627
  Serious: Yes (Other)
  Sender: FDA-Public Use
  Company Number: US-JNJFOC-20121005434

PATIENT
  Sex: Female
  Weight: 68.04 kg

DRUGS (6)
  1. PROPULSID [Suspect]
     Indication: GASTROINTESTINAL HYPOMOTILITY
     Route: 048
  2. PROPULSID [Suspect]
     Indication: GASTROINTESTINAL HYPOMOTILITY
     Route: 048
  3. PROPULSID [Suspect]
     Indication: GASTROOESOPHAGEAL REFLUX DISEASE
     Route: 048
  4. PROPULSID [Suspect]
     Indication: GASTROOESOPHAGEAL REFLUX DISEASE
     Route: 048
  5. PROPULSID [Suspect]
     Indication: IRRITABLE BOWEL SYNDROME
     Route: 048
  6. PROPULSID [Suspect]
     Indication: IRRITABLE BOWEL SYNDROME
     Route: 048

REACTIONS (1)
  - Gallbladder enlargement [Recovered/Resolved]
